FAERS Safety Report 20807543 (Version 1)
Quarter: 2022Q2

REPORT INFORMATION
  Report Type: Spontaneous
  Country: US (occurrence: None)
  Receive Date: 20220509
  Receipt Date: 20220509
  Transmission Date: 20220721
  Serious: Yes (Hospitalization)
  Sender: FDA-Public Use
  Company Number: None

PATIENT
  Age: 72 Year
  Sex: Male
  Weight: 117 kg

DRUGS (1)
  1. RIVAROXABAN [Suspect]
     Active Substance: RIVAROXABAN
     Indication: Atrial fibrillation
     Dosage: OTHER FREQUENCY : PM;?
     Route: 048
     Dates: start: 20160213, end: 20220218

REACTIONS (6)
  - Haemoglobin decreased [None]
  - Therapy interrupted [None]
  - Rash pruritic [None]
  - Gastrointestinal haemorrhage [None]
  - Gastric ulcer [None]
  - Haemorrhage [None]

NARRATIVE: CASE EVENT DATE: 20220218
